FAERS Safety Report 25729073 (Version 2)
Quarter: 2025Q3

REPORT INFORMATION
  Report Type: Spontaneous
  Country: AU (occurrence: AU)
  Receive Date: 20250827
  Receipt Date: 20250902
  Transmission Date: 20251020
  Serious: Yes (Death)
  Sender: UCB
  Company Number: AU-UCBSA-2025051935

PATIENT
  Sex: Female
  Weight: 65 kg

DRUGS (5)
  1. FENFLURAMINE HYDROCHLORIDE [Suspect]
     Active Substance: FENFLURAMINE HYDROCHLORIDE
     Indication: Severe myoclonic epilepsy of infancy
     Dosage: 4 MILLILITER, 2X/DAY (BID)
     Route: 048
     Dates: start: 202504
  2. CLOBAZAM [Concomitant]
     Active Substance: CLOBAZAM
     Indication: Epilepsy
     Dosage: 15 MILLIGRAM, ONCE DAILY (QD)
     Route: 048
  3. EPIDIOLEX [Concomitant]
     Active Substance: CANNABIDIOL
     Indication: Epilepsy
     Dosage: 350 MILLIGRAM, 2X/DAY (BID)
     Route: 048
  4. EPTOIN [Concomitant]
     Active Substance: PHENYTOIN SODIUM
     Indication: Epilepsy
     Route: 048
  5. STIRIPENTOL [Concomitant]
     Active Substance: STIRIPENTOL
     Indication: Epilepsy
     Dosage: 50 MILLIGRAM, 2X/DAY (BID)
     Route: 048

REACTIONS (1)
  - Bacterial sepsis [Fatal]

NARRATIVE: CASE EVENT DATE: 20250101
